FAERS Safety Report 21915339 (Version 2)
Quarter: 2023Q1

REPORT INFORMATION
  Report Type: Spontaneous
  Country: US (occurrence: US)
  Receive Date: 20230126
  Receipt Date: 20230130
  Transmission Date: 20230417
  Serious: No
  Sender: FDA-Public Use
  Company Number: US-SANOFI-01456005

PATIENT
  Age: 8 Year
  Sex: Female

DRUGS (2)
  1. DUPIXENT [Suspect]
     Active Substance: DUPILUMAB
     Indication: Dermatitis atopic
     Dosage: 600 MG, 1X
     Dates: start: 20220713, end: 20220713
  2. DUPIXENT [Suspect]
     Active Substance: DUPILUMAB
     Dosage: 300MG, Q4W

REACTIONS (7)
  - Stress [Unknown]
  - Dermatitis atopic [Unknown]
  - Paraesthesia [Unknown]
  - Neck injury [Unknown]
  - Limb asymmetry [Unknown]
  - Product dose omission issue [Unknown]
  - Drug ineffective [Unknown]
